FAERS Safety Report 6914511-8 (Version None)
Quarter: 2010Q3

REPORT INFORMATION
  Report Type: 
  Country: None (occurrence: None)
  Receive Date: 20100809
  Receipt Date: 20100730
  Transmission Date: 20110219
  Serious: Yes (Death, Life-Threatening, Hospitalization, Disabling)
  Sender: FDA-Public Use
  Company Number: AT-SANOFI-AVENTIS-2010SA045891

PATIENT
  Age: 66 Year
  Sex: Female
  Weight: 57 kg

DRUGS (6)
  1. PLAVIX [Suspect]
     Route: 065
     Dates: start: 20060510, end: 20060510
  2. BIVALIRUDIN [Suspect]
     Route: 040
     Dates: start: 20060510, end: 20060510
  3. BIVALIRUDIN [Suspect]
     Route: 042
     Dates: start: 20060510, end: 20060510
  4. ASPIRIN [Suspect]
     Route: 065
     Dates: start: 20060510, end: 20060510
  5. UNFRACTIONATED HEPARIN [Concomitant]
     Route: 065
     Dates: start: 20060510, end: 20060510
  6. ACENOCOUMAROL [Concomitant]

REACTIONS (4)
  - CARDIAC FAILURE CONGESTIVE [None]
  - CEREBRAL HAEMORRHAGE [None]
  - INCISION SITE HAEMORRHAGE [None]
  - SICK SINUS SYNDROME [None]
